FAERS Safety Report 5187830-6 (Version None)
Quarter: 2006Q4

REPORT INFORMATION
  Report Type: 
  Country: None (occurrence: None)
  Receive Date: 20061221
  Receipt Date: 20061212
  Transmission Date: 20070319
  Serious: Yes (Other)
  Sender: FDA-Public Use
  Company Number: US-BAYER-200614970BCC

PATIENT
  Age: 79 Year
  Sex: Female
  Weight: 56 kg

DRUGS (5)
  1. ASPIRIN [Suspect]
     Indication: SLEEP DISORDER
     Dosage: TOTAL DAILY DOSE: 81 MG  UNIT DOSE: 81 MG
     Route: 048
     Dates: start: 20060813
  2. FOSAMAX [Concomitant]
  3. CENTRUM SILVER [Concomitant]
  4. CALCIUM [Concomitant]
  5. VITAMIN E [Concomitant]

REACTIONS (4)
  - CERVICAL VERTEBRAL FRACTURE [None]
  - COMPRESSION FRACTURE [None]
  - FALL [None]
  - SLEEP WALKING [None]
